FAERS Safety Report 14145021 (Version 1)
Quarter: 2017Q4

REPORT INFORMATION
  Report Type: Spontaneous
  Country: US (occurrence: US)
  Receive Date: 20171031
  Receipt Date: 20171031
  Transmission Date: 20180321
  Serious: No
  Sender: FDA-Public Use
  Company Number: US-SHIRE-US201719195

PATIENT
  Age: 67 Year
  Sex: Male
  Weight: 117.46 kg

DRUGS (1)
  1. GAMMAGARD LIQUID [Suspect]
     Active Substance: HUMAN IMMUNOGLOBULIN G
     Indication: CHRONIC INFLAMMATORY DEMYELINATING POLYRADICULONEUROPATHY
     Dosage: 60 GRAMS FOR 4 CONSECUTIVE DAYS EVERY 3 WEEKS
     Route: 042

REACTIONS (1)
  - Fall [Unknown]
